FAERS Safety Report 8829381 (Version 1)
Quarter: 2012Q4

REPORT INFORMATION
  Report Type: 
  Country: US (occurrence: US)
  Receive Date: 20121008
  Receipt Date: 20121008
  Transmission Date: 20130627
  Serious: Yes (Other)
  Sender: FDA-Public Use
  Company Number: US-ROCHE-1132304

PATIENT
  Sex: Female

DRUGS (4)
  1. RITUXAN [Suspect]
     Indication: THROMBOCYTOPENIA
     Route: 065
  2. RITUXAN [Suspect]
     Indication: OFF LABEL USE
  3. TYGACIL [Concomitant]
     Route: 065
  4. BENADRYL [Concomitant]
     Route: 065

REACTIONS (3)
  - Cardiac disorder [Unknown]
  - Skin reaction [Unknown]
  - Gastrointestinal disorder [Unknown]
